FAERS Safety Report 6817817-6 (Version None)
Quarter: 2010Q3

REPORT INFORMATION
  Report Type: 
  Country: None (occurrence: None)
  Receive Date: 20100706
  Receipt Date: 20100624
  Transmission Date: 20110219
  Serious: Yes (Death)
  Sender: FDA-Public Use
  Company Number: ES-ELI_LILLY_AND_COMPANY-ES201007000033

PATIENT
  Sex: Male
  Weight: 65 kg

DRUGS (6)
  1. FORTEO [Suspect]
     Indication: FRACTURE
     Dosage: 20 UG, DAILY (1/D)
     Route: 058
     Dates: start: 20100223
  2. SEGURIL [Concomitant]
     Indication: DIURETIC THERAPY
     Dosage: 1 D/F, 2/D
     Route: 048
  3. SINTROM [Concomitant]
     Indication: CARDIOVASCULAR INSUFFICIENCY
     Dosage: 1 D/F, EVERY TWO DAYS
     Route: 048
  4. FLUIMUCIL [Concomitant]
     Dosage: 1 D/F, DAILY (1/D)
     Route: 048
  5. BOI K [Concomitant]
     Dosage: 1 D/F, 2/D
     Route: 048
  6. SOMAZINA [Concomitant]
     Indication: SENILE DEMENTIA
     Dosage: 1 ML, EVERY 8 HRS
     Route: 048

REACTIONS (1)
  - CEREBROVASCULAR ACCIDENT [None]
